FAERS Safety Report 8021216-1 (Version None)
Quarter: 2011Q4

REPORT INFORMATION
  Report Type: 
  Country: None (occurrence: None)
  Receive Date: 20111230
  Receipt Date: 20111230
  Transmission Date: 20120403
  Serious: Yes (Hospitalization)
  Sender: FDA-Public Use
  Company Number: None

PATIENT
  Sex: Male
  Weight: 48.7 kg

DRUGS (16)
  1. FLUOROURACIL [Suspect]
     Dosage: 3585 MG
     Dates: end: 20111122
  2. IRINOTECAN HCL [Suspect]
     Dosage: 229 MG
     Dates: end: 20111122
  3. BEVACIZUMAB (RHUMAB VEGF) [Suspect]
     Dosage: 224 MG
     Dates: end: 20111122
  4. MS CONTIN [Concomitant]
  5. GABEPENTIN [Concomitant]
  6. STEMETIL [Concomitant]
  7. LEUCOVORIN CALCIUM [Suspect]
     Dosage: 655 MG
  8. PRINCESS MARGARET HOSP. MOUTHWASH [Concomitant]
  9. DECADRON [Concomitant]
  10. FENTANYL-100 [Concomitant]
  11. COLACE [Concomitant]
  12. LACTULUSE [Concomitant]
  13. SIMVASTATIN [Concomitant]
  14. BETAMETHASONE [Concomitant]
  15. GRANISETRON [Concomitant]
  16. SENOKOT [Concomitant]

REACTIONS (2)
  - HYPOGLYCAEMIC UNCONSCIOUSNESS [None]
  - ABDOMINAL PAIN LOWER [None]
